FAERS Safety Report 24399767 (Version 1)
Quarter: 2024Q4

REPORT INFORMATION
  Report Type: Report from Study
  Country: ES (occurrence: ES)
  Receive Date: 20241005
  Receipt Date: 20241005
  Transmission Date: 20250114
  Serious: Yes (Death, Hospitalization)
  Sender: ACCORD
  Company Number: None

PATIENT
  Age: 71 Year
  Sex: Male

DRUGS (1)
  1. CAPECITABINE [Suspect]
     Active Substance: CAPECITABINE
     Indication: Adenocarcinoma of colon
     Dates: start: 20220520, end: 20220603

REACTIONS (3)
  - Pancytopenia [Fatal]
  - Mucosal inflammation [Fatal]
  - Diarrhoea [Fatal]

NARRATIVE: CASE EVENT DATE: 20220602
